FAERS Safety Report 6981996-0 (Version None)
Quarter: 2010Q3

REPORT INFORMATION
  Report Type: 
  Country: None (occurrence: None)
  Receive Date: 20100914
  Receipt Date: 20091104
  Transmission Date: 20110219
  Serious: No
  Sender: FDA-Public Use
  Company Number: US-PFIZER INC-2009293897

PATIENT
  Sex: Female
  Weight: 90 kg

DRUGS (9)
  1. LYRICA [Suspect]
     Indication: FIBROMYALGIA
     Dosage: UNK
     Route: 048
     Dates: start: 20080101, end: 20091029
  2. LYRICA [Suspect]
     Indication: DEPRESSION
     Dosage: 150 MG IN THE MORNING 300 MG IN THE EVENING
     Route: 048
  3. SKELAXIN [Concomitant]
     Dosage: UNK
  4. IBUPROFEN [Concomitant]
     Dosage: UNK
  5. LAMOTRIGINE [Concomitant]
     Dosage: UNK
  6. CLONAZEPAM [Concomitant]
     Dosage: UNK
  7. PREVACID [Concomitant]
     Dosage: UNK
  8. PRAVASTATIN [Concomitant]
     Dosage: UNK
  9. BENICAR [Concomitant]
     Dosage: UNK

REACTIONS (6)
  - AMNESIA [None]
  - DEPRESSION [None]
  - DRUG INEFFECTIVE [None]
  - SOMNOLENCE [None]
  - VISION BLURRED [None]
  - WEIGHT INCREASED [None]
